FAERS Safety Report 15533982 (Version 1)
Quarter: 2018Q4

REPORT INFORMATION
  Report Type: Spontaneous
  Country: US (occurrence: US)
  Receive Date: 20181019
  Receipt Date: 20181019
  Transmission Date: 20190205
  Serious: No
  Sender: FDA-Public Use
  Company Number: US-PFIZER INC-2018418285

PATIENT
  Age: 51 Year
  Sex: Female
  Weight: 88.45 kg

DRUGS (3)
  1. VITAMIN D3 [Concomitant]
     Active Substance: CHOLECALCIFEROL
     Indication: VITAMIN D DEFICIENCY
     Dosage: 2000 IU, UNK
  2. VITAMIN B12 [Concomitant]
     Active Substance: CYANOCOBALAMIN
     Indication: SURGERY
     Dosage: UNK UNK, ALTERNATE DAY (1 EVERY OTHER DAY)
  3. XELJANZ XR [Suspect]
     Active Substance: TOFACITINIB CITRATE
     Indication: RHEUMATOID ARTHRITIS
     Dosage: 11 MG, 1X/DAY (AT NIGHT)
     Route: 048
     Dates: start: 2017

REACTIONS (3)
  - Headache [Not Recovered/Not Resolved]
  - Influenza [Recovered/Resolved]
  - Pain [Not Recovered/Not Resolved]

NARRATIVE: CASE EVENT DATE: 20180723
